FAERS Safety Report 10197958 (Version 1)
Quarter: 2014Q2

REPORT INFORMATION
  Report Type: Report from Study
  Country: US (occurrence: US)
  Receive Date: 20140527
  Receipt Date: 20140527
  Transmission Date: 20141212
  Serious: Yes (Hospitalization)
  Sender: FDA-Public Use
  Company Number: US-SA-2014SA064990

PATIENT
  Sex: Female

DRUGS (5)
  1. CAMPATH [Suspect]
     Indication: T-CELL PROLYMPHOCYTIC LEUKAEMIA
     Route: 065
     Dates: start: 201108
  2. CAMPATH [Suspect]
     Indication: T-CELL PROLYMPHOCYTIC LEUKAEMIA
     Route: 065
     Dates: start: 201302
  3. CAMPATH [Suspect]
     Indication: T-CELL PROLYMPHOCYTIC LEUKAEMIA
     Route: 065
  4. CORTICOSTEROID NOS [Concomitant]
  5. TYLENOL [Concomitant]

REACTIONS (5)
  - Cytomegalovirus infection [Unknown]
  - White blood cell count increased [Unknown]
  - Dyspnoea [Unknown]
  - Abasia [Unknown]
  - Asthenia [Unknown]
